FAERS Safety Report 19208867 (Version 1)
Quarter: 2021Q2

REPORT INFORMATION
  Report Type: Spontaneous
  Country: US (occurrence: US)
  Receive Date: 20210504
  Receipt Date: 20210504
  Transmission Date: 20210717
  Serious: Yes (Other)
  Sender: FDA-Public Use
  Company Number: US-FARMAPROD-202104-0598

PATIENT
  Age: 68 Year
  Sex: Female
  Weight: 95.34 kg

DRUGS (26)
  1. PHENYTOIN. [Concomitant]
     Active Substance: PHENYTOIN
  2. OLMESARTAN MEDOXOMIL. [Concomitant]
     Active Substance: OLMESARTAN MEDOXOMIL
  3. OXERVATE [Suspect]
     Active Substance: CENEGERMIN-BKBJ
     Route: 047
     Dates: start: 20201222, end: 20210216
  4. BESIVANCE [Concomitant]
     Active Substance: BESIFLOXACIN
  5. CALCIUM [Concomitant]
     Active Substance: CALCIUM
  6. XIIDRA [Concomitant]
     Active Substance: LIFITEGRAST
  7. IMODIUM A?D [Concomitant]
     Active Substance: LOPERAMIDE HYDROCHLORIDE
     Dosage: 1 MG/7.5 ML LIQUID
  8. ERYTHROMYCIN. [Concomitant]
     Active Substance: ERYTHROMYCIN
  9. ESCITALOPRAM OXALATE. [Concomitant]
     Active Substance: ESCITALOPRAM OXALATE
  10. LEVETIRACETAM. [Concomitant]
     Active Substance: LEVETIRACETAM
     Dosage: 500 MG/5 ML VIAL
  11. OXERVATE [Suspect]
     Active Substance: CENEGERMIN-BKBJ
     Route: 047
     Dates: start: 20210223, end: 20210420
  12. SYSTANE COMPLETE [Concomitant]
     Active Substance: PROPYLENE GLYCOL
  13. FOSAMAX [Concomitant]
     Active Substance: ALENDRONATE SODIUM
  14. POTASSIUM [Concomitant]
     Active Substance: POTASSIUM
     Dosage: 595(99)MG
  15. PANTOPRAZOLE SODIUM. [Concomitant]
     Active Substance: PANTOPRAZOLE SODIUM
     Dosage: VIAL
  16. XELJANZ [Concomitant]
     Active Substance: TOFACITINIB CITRATE
  17. AZASITE [Concomitant]
     Active Substance: AZITHROMYCIN MONOHYDRATE
  18. MONTELUKAST SODIUM. [Concomitant]
     Active Substance: MONTELUKAST SODIUM
  19. VITAMIN D3 [Concomitant]
     Active Substance: CHOLECALCIFEROL
  20. OXERVATE [Suspect]
     Active Substance: CENEGERMIN-BKBJ
     Indication: NEUROTROPHIC KERATOPATHY
     Route: 047
     Dates: start: 20201026, end: 20201221
  21. ALLEGRA ALLERGY [Concomitant]
     Active Substance: FEXOFENADINE HYDROCHLORIDE
  22. PREDNISOLONE. [Concomitant]
     Active Substance: PREDNISOLONE
     Dosage: 15 MG/5 ML SOLUTION
  23. PRIMIDONE. [Concomitant]
     Active Substance: PRIMIDONE
  24. VITAMINE C [Concomitant]
     Active Substance: ASCORBIC ACID
  25. TORSEMIDE. [Concomitant]
     Active Substance: TORSEMIDE
  26. SULINDAC. [Concomitant]
     Active Substance: SULINDAC

REACTIONS (2)
  - Corneal transplant [Unknown]
  - Off label use [Unknown]

NARRATIVE: CASE EVENT DATE: 202103
